FAERS Safety Report 12434878 (Version 1)
Quarter: 2016Q2

REPORT INFORMATION
  Report Type: Spontaneous
  Country: JP (occurrence: JP)
  Receive Date: 20160603
  Receipt Date: 20160603
  Transmission Date: 20160815
  Serious: Yes (Death)
  Sender: FDA-Public Use
  Company Number: PHJP1900JP001055

PATIENT
  Age: 40 Year
  Sex: Female

DRUGS (13)
  1. SANDIMMUN INFUSION [Suspect]
     Active Substance: CYCLOSPORINE
     Indication: GRAFT VERSUS HOST DISEASE
     Dosage: 3 MG/KG, QD
     Route: 041
     Dates: start: 19881007, end: 19881103
  2. SANDIMMUN INFUSION [Suspect]
     Active Substance: CYCLOSPORINE
     Dosage: 6 MG/KG, QD
     Route: 048
     Dates: start: 19881104
  3. METHOTREXATE [Concomitant]
     Active Substance: METHOTREXATE
     Indication: GRAFT VERSUS HOST DISEASE
     Dosage: 15 MG, QD
     Route: 041
     Dates: start: 19880930, end: 19881001
  4. DEPAKENE//VALPROATE SODIUM [Concomitant]
     Indication: SEIZURE
     Dosage: 300 MG, QD
     Route: 048
     Dates: start: 19881022, end: 19890223
  5. DEPAKENE//VALPROATE SODIUM [Concomitant]
     Dosage: 1200 MG, QD
     Route: 048
     Dates: start: 19890224, end: 198903
  6. NO DRUG NAME [Concomitant]
     Indication: NUTRITIONAL SUPPLEMENTATION
     Dosage: UNK
     Route: 041
     Dates: start: 19880930
  7. SANDIMMUN INFUSION [Suspect]
     Active Substance: CYCLOSPORINE
     Indication: IMMUNISATION REACTION
     Dosage: 5 MG/KG, QD
     Route: 041
     Dates: start: 19880930, end: 19881006
  8. METHOTREXATE [Concomitant]
     Active Substance: METHOTREXATE
     Dosage: 10 MG, QD
     Route: 041
     Dates: start: 19881011, end: 19881011
  9. METHOTREXATE [Concomitant]
     Active Substance: METHOTREXATE
     Dosage: 10 MG, QD
     Route: 041
     Dates: start: 19881003, end: 19881003
  10. PHENOBARBITAL. [Concomitant]
     Active Substance: PHENOBARBITAL
     Indication: SEIZURE
     Dosage: 500 MG, QD
     Route: 048
     Dates: start: 198903, end: 198903
  11. SANDIMMUN INFUSION [Suspect]
     Active Substance: CYCLOSPORINE
     Dosage: 4 MG/KG, QD
     Dates: end: 19890713
  12. METHOTREXATE [Concomitant]
     Active Substance: METHOTREXATE
     Dosage: 10 MG, QD
     Route: 041
     Dates: start: 19881006, end: 19881006
  13. NO DRUG NAME [Concomitant]
     Indication: SEIZURE
     Dosage: 1.5 MG, QD
     Route: 048
     Dates: start: 198903, end: 198907

REACTIONS (3)
  - Seizure [Recovered/Resolved]
  - Hepatic failure [Fatal]
  - Tremor [Recovering/Resolving]
